FAERS Safety Report 7335371-X (Version None)
Quarter: 2011Q1

REPORT INFORMATION
  Report Type: 
  Country: None (occurrence: None)
  Receive Date: 20110214
  Receipt Date: 20100722
  Transmission Date: 20110831
  Serious: Yes (Other)
  Sender: FDA-Public Use
  Company Number: 2010US-36245

PATIENT
  Age: 68 Year
  Sex: Female
  Weight: 91.2 kg

DRUGS (8)
  1. ASPIRIN [Concomitant]
  2. LIPITOR [Concomitant]
  3. CALAN [Suspect]
     Indication: HYPERTENSION
     Dosage: 120 MG, QD, ORAL
     Route: 048
     Dates: start: 20060525, end: 20060627
  4. VASOTEC [Concomitant]
  5. HYDROCHLOROTHIAZIDE [Concomitant]
  6. SYNTHROID [Concomitant]
  7. ZOLOFT [Concomitant]
  8. PREVACID (LANSOPRAZOLE) [Concomitant]

REACTIONS (1)
  - URTICARIA [None]
